FAERS Safety Report 6035253-X (Version None)
Quarter: 2009Q1

REPORT INFORMATION
  Report Type: 
  Country: None (occurrence: None)
  Receive Date: 20090109
  Receipt Date: 20081223
  Transmission Date: 20090719
  Serious: Yes (Death)
  Sender: FDA-Public Use
  Company Number: IDA-00169

PATIENT
  Age: 57 Year
  Sex: Male

DRUGS (8)
  1. PROPRANOLOL [Suspect]
     Dosage: DAILY, ORAL FORMULATION
     Route: 048
  2. QUETIAPINE FUMARATE [Suspect]
     Dosage: DAILY, ORAL FORMULATION
     Route: 048
  3. LITHIUM [Suspect]
     Dosage: DAILY, ORAL FORMULATION
     Route: 048
  4. VERAPAMIL [Suspect]
     Dosage: DAILY, ORAL FORMULATION
     Route: 048
  5. GLIPIZIDE [Suspect]
     Dosage: DAILY, ORAL FORMULATION
     Route: 048
  6. CLONIDINE [Suspect]
     Dosage: DAILY, ORAL FORMULATION
     Route: 048
  7. MODAFINIL [Suspect]
     Dosage: DAILY, ORAL FORMULATION
     Route: 048
  8. PAROXETINE HCL [Suspect]
     Dosage: DAILY, ORAL FORMULATION
     Route: 048

REACTIONS (1)
  - DEATH [None]
